FAERS Safety Report 7236590-3 (Version None)
Quarter: 2011Q1

REPORT INFORMATION
  Report Type: 
  Country: None (occurrence: None)
  Receive Date: 20110113
  Receipt Date: 20110105
  Transmission Date: 20110831
  Serious: Yes (Other)
  Sender: FDA-Public Use
  Company Number: 1000017519

PATIENT
  Age: 90 Year
  Sex: Female

DRUGS (8)
  1. NEBIVOLOL HCL [Suspect]
     Dosage: 5 MG (5 MG, 1 IN 1 D), ORAL
     Route: 048
  2. COACIT VITAMINE D3 (CALCIUM CARBONATE, COLECALCIFEROL) (CALCIUM CARBON [Concomitant]
  3. NOVOMIX (INSULIN ASPART) (INSULIN ASPART) [Concomitant]
  4. MONICOR LP (ISOSORBIDE MONONITRATE) (ISOSORBIDE MONONITRATE) [Concomitant]
  5. IMOVANE (ZOPICLONE) (ZOPICLONE) [Concomitant]
  6. MEDIATENSYL (URAPIDIL) (URAPIDIL) [Concomitant]
  7. IPERTEN (MANIDIPINE HYDROCHLORIDE) (MANIDIPINE HYDROCHLORIDE) [Concomitant]
  8. LEVOTHYROXINE SODIUM [Concomitant]

REACTIONS (3)
  - PRURITUS GENERALISED [None]
  - PEMPHIGOID [None]
  - RASH [None]
